FAERS Safety Report 8021916-3 (Version None)
Quarter: 2011Q4

REPORT INFORMATION
  Report Type: 
  Country: None (occurrence: None)
  Receive Date: 20111230
  Receipt Date: 20111219
  Transmission Date: 20120403
  Serious: Yes (Hospitalization)
  Sender: FDA-Public Use
  Company Number: MPS1-1000614

PATIENT
  Age: 45 Year
  Sex: Female
  Weight: 35 kg

DRUGS (5)
  1. FLEXERIL [Concomitant]
  2. VICODIN [Concomitant]
  3. CLARITIN [Concomitant]
  4. ALDURAZYME [Suspect]
     Indication: MUCOPOLYSACCHARIDOSIS I
     Dosage: 20.3 MG,Q2W; INTRAVENOUS
     Route: 042
     Dates: start: 20070401
  5. ACETAMINOPHEN [Concomitant]

REACTIONS (1)
  - SPINAL DISORDER [None]
